FAERS Safety Report 15713718 (Version 2)
Quarter: 2018Q4

REPORT INFORMATION
  Report Type: Report from Study
  Country: DE (occurrence: DE)
  Receive Date: 20181212
  Receipt Date: 20181218
  Transmission Date: 20190205
  Serious: Yes (Other)
  Sender: FDA-Public Use
  Company Number: DE-BAYER-2015-390037

PATIENT
  Age: 24 Year
  Sex: Female

DRUGS (16)
  1. PREDNISOLONE. [Suspect]
     Active Substance: PREDNISOLONE
     Dosage: GESTATIONAL WEEK 0-14
  2. XARELTO [Suspect]
     Active Substance: RIVAROXABAN
     Indication: THROMBOSIS PROPHYLAXIS
     Dosage: GESTATIONAL WEEK 0-5
  3. ACETYLSALICYLIC ACID({=100 MG) [Suspect]
     Active Substance: ASPIRIN
     Dosage: GESTATIONAL WEEK 0-14
  4. SALBUTAMOL [Suspect]
     Active Substance: ALBUTEROL
     Dosage: GESTATIONAL WEEK 0-14
  5. NICOTINE. [Suspect]
     Active Substance: NICOTINE
     Dosage: GESTATIONAL WEEK 0-14
  6. RAMIPRIL. [Suspect]
     Active Substance: RAMIPRIL
     Dosage: 20 MG, GESTATIONAL WEEK 0-13+6
  7. TORASEMIDE [Suspect]
     Active Substance: TORSEMIDE
     Dosage: GESTATIONAL WEEK 0-14
  8. SIMVASTATIN. [Suspect]
     Active Substance: SIMVASTATIN
     Dosage: GESTATIONAL WEEK 0-14
  9. HYDROXYCHLOROQUINE [Suspect]
     Active Substance: HYDROXYCHLOROQUINE
     Dosage: GESTATIONAL WEEK 0-14
  10. PANTOPRAZOLE [Suspect]
     Active Substance: PANTOPRAZOLE
     Dosage: GESTATIONAL WEEK 0-14
  11. ENOXAPARIN [Suspect]
     Active Substance: ENOXAPARIN
     Dosage: GESTATIONAL WEEK 0-14
  12. DALTEPARIN SODIUM [Suspect]
     Active Substance: DALTEPARIN SODIUM
     Dosage: GESTATIONAL WEEK 6-14
  13. METAMIZOLE [Suspect]
     Active Substance: METAMIZOLE
     Dosage: GESTATIONAL WEEK 0-14
  14. ALISKIREN [Suspect]
     Active Substance: ALISKIREN
     Dosage: GESTATIONAL WEEK 0-5
  15. TACROLIMUS. [Suspect]
     Active Substance: TACROLIMUS
     Dosage: GESTATIONAL WEEK 0-14
  16. EZETIMIBE. [Suspect]
     Active Substance: EZETIMIBE
     Dosage: GESTATIONAL WEEK 0-14

REACTIONS (7)
  - Vena cava thrombosis [None]
  - Drug ineffective [None]
  - Product monitoring error [None]
  - Foetal malformation [None]
  - Renal vascular thrombosis [None]
  - Maternal exposure during pregnancy [None]
  - Contraindicated product administered [None]
